FAERS Safety Report 6774129-7 (Version None)
Quarter: 2010Q2

REPORT INFORMATION
  Report Type: 
  Country: None (occurrence: None)
  Receive Date: 20100617
  Receipt Date: 20100603
  Transmission Date: 20101027
  Serious: Yes (Other)
  Sender: FDA-Public Use
  Company Number: AU-RANBAXY-2010RR-34663

PATIENT
  Age: 60 Year
  Sex: Male

DRUGS (9)
  1. ZIDOVUDINE [Suspect]
     Indication: HIV INFECTION
  2. LAMIVUDINE [Suspect]
     Indication: HIV INFECTION
  3. EFAVIRENZ [Suspect]
     Indication: HIV INFECTION
  4. LOPINAVIR/RITONAVIR [Suspect]
     Indication: HIV INFECTION
  5. TENOFOVIR DISOPROXIL FUMARATE [Suspect]
     Indication: HIV INFECTION
  6. COTRIM [Suspect]
  7. AZITHROMYCIN [Suspect]
  8. FLUCONAZOLE [Suspect]
  9. ABACAVIR [Concomitant]
     Indication: HIV INFECTION

REACTIONS (2)
  - IMMUNE RECONSTITUTION SYNDROME [None]
  - VISCERAL LEISHMANIASIS [None]
